FAERS Safety Report 18234681 (Version 1)
Quarter: 2020Q3

REPORT INFORMATION
  Report Type: Spontaneous
  Country: DE (occurrence: DE)
  Receive Date: 20200904
  Receipt Date: 20200904
  Transmission Date: 20201103
  Serious: Yes (Other)
  Sender: FDA-Public Use
  Company Number: DE-AUROBINDO-AUR-APL-2020-046138

PATIENT
  Age: 42 Year
  Sex: Male

DRUGS (3)
  1. MIRTAZAPIN [Concomitant]
     Active Substance: MIRTAZAPINE
     Indication: PRODUCT USED FOR UNKNOWN INDICATION
     Dosage: 30 MILLIGRAM, ONCE A DAY (FOR THE TIME BEING)
     Route: 065
     Dates: start: 20200221
  2. VENLAFAXINE [Suspect]
     Active Substance: VENLAFAXINE HYDROCHLORIDE
     Dosage: 150 MILLIGRAM, ONCE A DAY (UNTIL 02/27/2020 75 MG)
     Route: 065
     Dates: start: 20200228
  3. VENLAFAXINE [Suspect]
     Active Substance: VENLAFAXINE HYDROCHLORIDE
     Indication: PRODUCT USED FOR UNKNOWN INDICATION
     Dosage: 75 MILLIGRAM (FOR A LONG TIME)
     Route: 065

REACTIONS (9)
  - Joint stiffness [Recovered/Resolved]
  - Apathy [Recovered/Resolved]
  - Hypoaesthesia [Recovered/Resolved]
  - Disturbance in attention [Recovered/Resolved]
  - Headache [Recovered/Resolved]
  - Dysarthria [Recovered/Resolved]
  - Head discomfort [Recovered/Resolved]
  - Memory impairment [Recovered/Resolved]
  - Epistaxis [Recovered/Resolved]

NARRATIVE: CASE EVENT DATE: 202003
